FAERS Safety Report 23659921 (Version 2)
Quarter: 2024Q3

REPORT INFORMATION
  Report Type: Spontaneous
  Country: US (occurrence: US)
  Receive Date: 20240321
  Receipt Date: 20240813
  Transmission Date: 20241017
  Serious: No
  Sender: SANOFI AVENTIS
  Company Number: US-SA-SAC20240318000975

PATIENT
  Age: 66 Year
  Sex: Female

DRUGS (1)
  1. DUPIXENT [Suspect]
     Active Substance: DUPILUMAB
     Indication: Neurodermatitis
     Dosage: 300 MG, QOW
     Route: 058

REACTIONS (9)
  - Viral infection [Unknown]
  - Candida infection [Unknown]
  - Mouth ulceration [Unknown]
  - Eye pain [Unknown]
  - Condition aggravated [Unknown]
  - Vertigo [Unknown]
  - Vision blurred [Unknown]
  - Arthralgia [Unknown]
  - Dry eye [Unknown]
